FAERS Safety Report 26068989 (Version 1)
Quarter: 2025Q4

REPORT INFORMATION
  Report Type: Spontaneous
  Country: US (occurrence: US)
  Receive Date: 20251120
  Receipt Date: 20251120
  Transmission Date: 20260117
  Serious: No
  Sender: GLAND PHARMA LTD
  Company Number: US-GLANDPHARMA-US-2025GLNSPO02019

PATIENT

DRUGS (6)
  1. VERAPAMIL HYDROCHLORIDE [Suspect]
     Active Substance: VERAPAMIL HYDROCHLORIDE
     Indication: Vestibular migraine
     Route: 065
  2. FAMOTIDINE [Concomitant]
     Active Substance: FAMOTIDINE
     Indication: Mast cell activation syndrome
     Route: 065
  3. FAMOTIDINE [Concomitant]
     Active Substance: FAMOTIDINE
     Indication: Histamine intolerance
  4. VICKS NYQUIL [Concomitant]
     Active Substance: ACETAMINOPHEN\DEXTROMETHORPHAN HYDROBROMIDE\DOXYLAMINE SUCCINATE
     Indication: Product used for unknown indication
     Dosage: SMALL DOSE
     Route: 065
  5. QUERCETIN [Concomitant]
     Active Substance: QUERCETIN
     Indication: Mast cell activation syndrome
  6. QUERCETIN [Concomitant]
     Active Substance: QUERCETIN
     Indication: Histamine intolerance

REACTIONS (2)
  - Fatigue [Unknown]
  - Product use in unapproved indication [Unknown]
